FAERS Safety Report 18124989 (Version 2)
Quarter: 2020Q3

REPORT INFORMATION
  Report Type: Report from Study
  Country: CO (occurrence: CO)
  Receive Date: 20200807
  Receipt Date: 20200910
  Transmission Date: 20201103
  Serious: Yes (Hospitalization)
  Sender: FDA-Public Use
  Company Number: PHHY2017CO050773

PATIENT
  Age: 55 Year
  Sex: Female
  Weight: 61 kg

DRUGS (5)
  1. TASIGNA [Suspect]
     Active Substance: NILOTINIB
     Dosage: 400 MG, QD
     Route: 065
  2. TASIGNA [Suspect]
     Active Substance: NILOTINIB
     Dosage: 800 MG, QD
     Route: 065
  3. TASIGNA [Suspect]
     Active Substance: NILOTINIB
     Dosage: 800 MG, QD
     Route: 048
     Dates: start: 20180217
  4. TASIGNA [Suspect]
     Active Substance: NILOTINIB
     Dosage: 400 MG, Q12H
     Route: 048
  5. TASIGNA [Suspect]
     Active Substance: NILOTINIB
     Indication: CHRONIC MYELOID LEUKAEMIA
     Dosage: 2 DF, Q12H
     Route: 048
     Dates: start: 20170323

REACTIONS (21)
  - Discomfort [Unknown]
  - Cytogenetic analysis abnormal [Not Recovered/Not Resolved]
  - Feeding disorder [Unknown]
  - Overdose [Unknown]
  - Thyroid disorder [Unknown]
  - Abdominal pain [Unknown]
  - Hypoaesthesia [Unknown]
  - Restless legs syndrome [Unknown]
  - Pain [Unknown]
  - Liver disorder [Unknown]
  - Feeling abnormal [Unknown]
  - Inappropriate schedule of product administration [Unknown]
  - Dizziness [Not Recovered/Not Resolved]
  - Yellow skin [Unknown]
  - Red blood cell count abnormal [Unknown]
  - Back pain [Unknown]
  - Headache [Unknown]
  - Incorrect dose administered [Unknown]
  - Cough [Unknown]
  - Pain in extremity [Unknown]
  - Drug ineffective [Unknown]

NARRATIVE: CASE EVENT DATE: 20170323
